FAERS Safety Report 8479853-6 (Version None)
Quarter: 2012Q2

REPORT INFORMATION
  Report Type: 
  Country: None (occurrence: None)
  Receive Date: 20120619
  Receipt Date: 20120605
  Transmission Date: 20120825
  Serious: Yes (Hospitalization)
  Sender: FDA-Public Use
  Company Number: A0981314A

PATIENT
  Age: 30 Year
  Sex: Female

DRUGS (1)
  1. LAMOTRIGINE [Suspect]

REACTIONS (3)
  - RESPIRATORY DISTRESS [None]
  - CONJUNCTIVAL ULCER [None]
  - TOXIC EPIDERMAL NECROLYSIS [None]
